FAERS Safety Report 8276625-2 (Version None)
Quarter: 2012Q2

REPORT INFORMATION
  Report Type: 
  Country: None (occurrence: None)
  Receive Date: 20120412
  Receipt Date: 20120404
  Transmission Date: 20120825
  Serious: Yes (Hospitalization)
  Sender: FDA-Public Use
  Company Number: PHHO2012US005442

PATIENT
  Sex: Female
  Weight: 103.9 kg

DRUGS (5)
  1. AMG 479 [Concomitant]
     Indication: NEOPLASM MALIGNANT
     Dosage: 12 MG/KG, Q 14 DAYS
     Dates: start: 20120313, end: 20120327
  2. OXYCODONE HCL [Concomitant]
  3. MS CONTIN [Concomitant]
  4. ZANTAC [Concomitant]
  5. AFINITOR [Suspect]
     Indication: NEOPLASM MALIGNANT
     Dosage: 5 MG, QW5
     Route: 048
     Dates: start: 20120327, end: 20120331

REACTIONS (1)
  - FISTULA [None]
